FAERS Safety Report 25573297 (Version 1)
Quarter: 2025Q3

REPORT INFORMATION
  Report Type: Spontaneous
  Country: US (occurrence: None)
  Receive Date: 20250716
  Receipt Date: 20250716
  Transmission Date: 20251021
  Serious: No
  Sender: FDA-CTU
  Company Number: None

PATIENT
  Age: 83 Year
  Sex: Male

DRUGS (1)
  1. XDEMVY [Suspect]
     Active Substance: LOTILANER
     Dosage: 0.25% PERCENT DAILY OPHTHALMIC
     Route: 047
     Dates: start: 20250604

REACTIONS (4)
  - Dysstasia [None]
  - Eye disorder [None]
  - Vertigo [None]
  - Headache [None]

NARRATIVE: CASE EVENT DATE: 20250709
